FAERS Safety Report 17721348 (Version 2)
Quarter: 2020Q2

REPORT INFORMATION
  Report Type: Spontaneous
  Country: DE (occurrence: DE)
  Receive Date: 20200429
  Receipt Date: 20200509
  Transmission Date: 20200714
  Serious: Yes (Life-Threatening, Other)
  Sender: FDA-Public Use
  Company Number: DE-TEVA-2020-DE-1227365

PATIENT
  Age: 52 Year
  Sex: Male
  Weight: 80 kg

DRUGS (6)
  1. GABAPENTIN 600MG [Interacting]
     Active Substance: GABAPENTIN
     Indication: BACK PAIN
     Dosage: 600 MG
     Dates: start: 2018
  2. RESTEX 100/25 [Interacting]
     Active Substance: BENSERAZIDE HYDROCHLORIDE\LEVODOPA
     Indication: RESTLESS LEGS SYNDROME
     Dosage: 125 MG
     Dates: start: 2019
  3. CYMBALTA [Interacting]
     Active Substance: DULOXETINE HYDROCHLORIDE
     Indication: INTERVERTEBRAL DISC DISORDER
     Dosage: 60 MG
     Dates: start: 2015
  4. MIRTAZAPIN 30MG [Interacting]
     Active Substance: MIRTAZAPINE
     Indication: SLEEP DISORDER
     Dosage: 1-2 TIMES A DAY, 30 MG
     Dates: start: 2018
  5. NOVALGIN (METAMIZOLE SODIUM) [Interacting]
     Active Substance: METAMIZOLE SODIUM
     Dosage: 3 TIMES A DAY
  6. PRAMIPEXOL 0,18 MG (PRAMIPEXOLE) [Suspect]
     Active Substance: PRAMIPEXOLE
     Indication: SEXUAL DYSFUNCTION
     Dosage: .18 MILLIGRAM DAILY; 1X AT NIGHT.
     Dates: start: 20200114

REACTIONS (3)
  - Mental impairment [Not Recovered/Not Resolved]
  - Drug interaction [Unknown]
  - Personality change [Not Recovered/Not Resolved]
